FAERS Safety Report 8788237 (Version 2)
Quarter: 2012Q4

REPORT INFORMATION
  Report Type: 
  Country: US (occurrence: US)
  Receive Date: 20120914
  Receipt Date: 20120914
  Transmission Date: 20130627
  Serious: Yes (Other)
  Sender: FDA-Public Use
  Company Number: CHPA2010US14033

PATIENT
  Age: 87 None
  Sex: Female
  Weight: 70.3 kg

DRUGS (11)
  1. NUPERCAINAL HEMORRHOIDAL/ANES OINTMENT [Suspect]
     Indication: LIP INJURY
     Dosage: UNK, UNK
     Route: 061
  2. NUPERCAINAL HEMORRHOIDAL/ANES OINTMENT [Suspect]
     Dosage: UNK, UNK
     Route: 061
  3. NUPERCAINAL HEMORRHOIDAL/ANES OINTMENT [Suspect]
     Dosage: UNK, UNK
     Route: 061
     Dates: start: 1973
  4. GAS-X [Concomitant]
     Dosage: Unk, Unk
     Route: 048
  5. CLONIDINE [Concomitant]
     Indication: HYPERTENSION
     Dosage: Unk, Unk
  6. ATENOLOL [Concomitant]
     Indication: CARDIAC DISORDER
     Dosage: Unk, Unk
  7. HYDROCHLOROTHIAZIDE [Concomitant]
     Indication: FLUID IMBALANCE
     Dosage: UNK, as needed
  8. ZANTAC [Concomitant]
     Dosage: Unk, Unk
  9. NORVASC                                 /DEN/ [Concomitant]
     Indication: HYPERTENSION
     Dosage: Unk, Unk
     Route: 048
  10. LISINOPRIL [Concomitant]
     Indication: BLOOD PRESSURE INCREASED
     Dosage: 40 mg, UNK
  11. LISINOPRIL [Concomitant]
     Dosage: 5 mg, UNK

REACTIONS (10)
  - Thrombosis [Recovered/Resolved]
  - Retinal tear [Recovered/Resolved]
  - Anxiety [Not Recovered/Not Resolved]
  - Food allergy [Not Recovered/Not Resolved]
  - Off label use [Unknown]
  - Drug ineffective for unapproved indication [Unknown]
  - Expired drug administered [Unknown]
  - Therapeutic response unexpected [Unknown]
  - Product colour issue [Unknown]
  - Nervous system disorder [None]
